FAERS Safety Report 9464150 (Version 9)
Quarter: 2015Q1

REPORT INFORMATION
  Report Type: Report from Study
  Country: US (occurrence: US)
  Receive Date: 20130819
  Receipt Date: 20150305
  Transmission Date: 20150721
  Serious: Yes (Other)
  Sender: FDA-Public Use
  Company Number: US-SANOFI-AVENTIS-2013SA019260

PATIENT
  Age: 68 Year
  Sex: Female
  Weight: 82.1 kg

DRUGS (12)
  1. TROSPIUM CHLORIDE. [Concomitant]
     Active Substance: TROSPIUM CHLORIDE
     Dosage: 20 MG; RPT
     Route: 048
  2. AUBAGIO [Suspect]
     Active Substance: TERIFLUNOMIDE
     Indication: RELAPSING-REMITTING MULTIPLE SCLEROSIS
     Route: 048
     Dates: start: 20130128, end: 20130226
  3. AUBAGIO [Suspect]
     Active Substance: TERIFLUNOMIDE
     Indication: RELAPSING-REMITTING MULTIPLE SCLEROSIS
     Route: 048
     Dates: start: 20130309, end: 20150106
  4. CALCIUM [Concomitant]
     Active Substance: CALCIUM
     Dosage: 600 TABS; RPT
  5. HYDROCODONE W/ACETAMINOPHEN [Concomitant]
     Active Substance: ACETAMINOPHEN\HYDROCODONE BITARTRATE
     Dosage: 5-325 MG; Q 6 HOURS PRN PAIN DURING DAY. MAX = 3 TABS DAILY;
     Route: 048
  6. HYDROCHLOROTHIAZIDE/TRIAMTERENE [Concomitant]
     Dosage: RPT
  7. VITAMIN D [Concomitant]
     Active Substance: CHOLECALCIFEROL
     Dosage: RPT DOSE:2000 UNIT(S)
     Route: 048
  8. HYDROCODONE W/ACETAMINOPHEN [Concomitant]
     Active Substance: ACETAMINOPHEN\HYDROCODONE BITARTRATE
     Dosage: 5-325 MG
     Route: 048
  9. NORTRIPTYLINE HYDROCHLORIDE. [Concomitant]
     Active Substance: NORTRIPTYLINE HYDROCHLORIDE
     Route: 048
  10. NORTRIPTYLINE HYDROCHLORIDE. [Concomitant]
     Active Substance: NORTRIPTYLINE HYDROCHLORIDE
     Route: 048
  11. METAXALONE. [Concomitant]
     Active Substance: METAXALONE
     Dosage: 800 MG
     Route: 048
  12. NORTRIPTYLINE HYDROCHLORIDE. [Concomitant]
     Active Substance: NORTRIPTYLINE HYDROCHLORIDE
     Route: 048

REACTIONS (36)
  - Fatigue [Not Recovered/Not Resolved]
  - Exercise tolerance decreased [Unknown]
  - Insomnia [Unknown]
  - Influenza [Unknown]
  - Fall [Unknown]
  - Aphasia [Unknown]
  - Muscular weakness [Unknown]
  - Upper respiratory tract infection [Recovering/Resolving]
  - Pyrexia [Recovering/Resolving]
  - Pollakiuria [Recovering/Resolving]
  - Asthenia [Unknown]
  - Fatigue [Unknown]
  - Micturition urgency [Recovering/Resolving]
  - Nausea [Recovered/Resolved]
  - Feeling abnormal [Not Recovered/Not Resolved]
  - Multiple sclerosis relapse [Not Recovered/Not Resolved]
  - Hypoaesthesia [Unknown]
  - Diarrhoea [Recovering/Resolving]
  - Drug dose omission [Unknown]
  - Cataract [Unknown]
  - Platelet count decreased [Unknown]
  - Muscular weakness [Unknown]
  - Gait disturbance [Recovering/Resolving]
  - Hot flush [Unknown]
  - Asthenia [Not Recovered/Not Resolved]
  - Depressed mood [Unknown]
  - Muscle spasms [Unknown]
  - Gastroenteritis viral [Recovering/Resolving]
  - Blood pressure increased [Recovered/Resolved]
  - Dehydration [Unknown]
  - Condition aggravated [Recovering/Resolving]
  - Incontinence [Unknown]
  - Paraesthesia [Unknown]
  - Abdominal discomfort [Recovered/Resolved]
  - Balance disorder [Unknown]
  - Pyrexia [Unknown]

NARRATIVE: CASE EVENT DATE: 2013
